FAERS Safety Report 4291397-4 (Version None)
Quarter: 2004Q1

REPORT INFORMATION
  Report Type: 
  Country: None (occurrence: None)
  Receive Date: 20040211
  Receipt Date: 20030324
  Transmission Date: 20041129
  Serious: No
  Sender: FDA-Public Use
  Company Number: US-BRISTOL-MYERS SQUIBB COMPANY-12219804

PATIENT
  Age: 54 Year
  Sex: Female

DRUGS (6)
  1. CEFPROZIL [Suspect]
     Indication: CHRONIC SINUSITIS
  2. ADVAIR DISKUS 100/50 [Suspect]
     Indication: ASTHMA
     Route: 055
     Dates: start: 20030115
  3. FLUTICASONE PROPIONATE [Concomitant]
  4. SALBUTAMOL SULPHATE [Concomitant]
  5. IPRATROPIUM BROMIDE [Concomitant]
  6. THYROXINE SODIUM [Concomitant]

REACTIONS (2)
  - ASTHMA [None]
  - SLUGGISHNESS [None]
